FAERS Safety Report 9685802 (Version 1)
Quarter: 2013Q4

REPORT INFORMATION
  Report Type: Spontaneous
  Country: US (occurrence: US)
  Receive Date: 20131113
  Receipt Date: 20131113
  Transmission Date: 20140711
  Serious: No
  Sender: FDA-Public Use
  Company Number: US-PFIZER INC-2013322558

PATIENT
  Age: 60 Year
  Sex: Female

DRUGS (10)
  1. NEURONTIN [Suspect]
     Dosage: UNK
  2. CELEBREX [Suspect]
     Dosage: UNK
  3. CLEOCIN [Suspect]
     Dosage: UNK
  4. METHOCARBAMOL [Suspect]
     Dosage: UNK
  5. CODEINE [Suspect]
     Dosage: UNK
  6. HYDROCODONE [Suspect]
     Dosage: UNK
  7. LIMBREL [Suspect]
     Dosage: UNK
  8. RELAFEN [Suspect]
     Dosage: UNK
  9. MACROBID [Suspect]
     Dosage: UNK
  10. BIAXIN [Suspect]
     Dosage: UNK

REACTIONS (1)
  - Drug hypersensitivity [Unknown]
